FAERS Safety Report 18364334 (Version 1)
Quarter: 2020Q4

REPORT INFORMATION
  Report Type: Spontaneous
  Country: US (occurrence: US)
  Receive Date: 20201009
  Receipt Date: 20201009
  Transmission Date: 20210114
  Serious: Yes (Death, Hospitalization, Other)
  Sender: FDA-Public Use
  Company Number: US-MICRO LABS LIMITED-ML2020-02972

PATIENT
  Age: 67 Year
  Sex: Male

DRUGS (4)
  1. CLOPIDOGREL [Concomitant]
     Active Substance: CLOPIDOGREL BISULFATE
  2. ATORVASTATIN [Concomitant]
     Active Substance: ATORVASTATIN
  3. CLONAZEPAM. [Concomitant]
     Active Substance: CLONAZEPAM
  4. RANOLAZINE. [Suspect]
     Active Substance: RANOLAZINE
     Dosage: APPROX. 30 G OF EXTENDED-RELEASE RANOLAZINE SEVERAL HOURS PRIOR IN A SUICIDE ATTEMPT
     Route: 048

REACTIONS (9)
  - Ventricular tachycardia [Fatal]
  - Seizure [Unknown]
  - Pulseless electrical activity [Fatal]
  - Cardiac arrest [Fatal]
  - Intentional overdose [Fatal]
  - Suicide attempt [Fatal]
  - Mental status changes [Unknown]
  - Atrioventricular block first degree [Unknown]
  - Vomiting [Unknown]
